FAERS Safety Report 14016309 (Version 1)
Quarter: 2017Q3

REPORT INFORMATION
  Report Type: Spontaneous
  Country: US (occurrence: US)
  Receive Date: 20170927
  Receipt Date: 20170927
  Transmission Date: 20171128
  Serious: No
  Sender: FDA-Public Use
  Company Number: US-SA-2017SA021326

PATIENT
  Age: 48 Year
  Sex: Female
  Weight: 94.3 kg

DRUGS (1)
  1. LEMTRADA [Suspect]
     Active Substance: ALEMTUZUMAB
     Indication: MULTIPLE SCLEROSIS
     Route: 041
     Dates: start: 20160516, end: 20160520

REACTIONS (5)
  - Dyspnoea exertional [Recovered/Resolved]
  - Oxygen saturation decreased [Recovered/Resolved]
  - Rash [Unknown]
  - Alveolitis allergic [Recovered/Resolved]
  - Chest discomfort [Recovered/Resolved]

NARRATIVE: CASE EVENT DATE: 201612
